FAERS Safety Report 9255182 (Version 1)
Quarter: 2013Q2

REPORT INFORMATION
  Report Type: Spontaneous
  Country: US (occurrence: None)
  Receive Date: 20130423
  Receipt Date: 20130423
  Transmission Date: 20140414
  Serious: Yes (Other)
  Sender: FDA-Public Use
  Company Number: None

PATIENT
  Sex: Male

DRUGS (1)
  1. ENBREL [Suspect]
     Indication: PSORIATIC ARTHROPATHY
     Dosage: 50 MG ONCE A WEEK SUBCUTANEOUSLY
     Route: 058
     Dates: start: 20100208, end: 20130120

REACTIONS (2)
  - Neoplasm malignant [None]
  - Gastrointestinal disorder [None]
